FAERS Safety Report 6494476-6 (Version None)
Quarter: 2009Q4

REPORT INFORMATION
  Report Type: 
  Country: None (occurrence: None)
  Receive Date: 20091214
  Receipt Date: 20090226
  Transmission Date: 20100525
  Serious: No
  Sender: FDA-Public Use
  Company Number: US-BRISTOL-MYERS SQUIBB COMPANY-14516603

PATIENT
  Age: 75 Year
  Sex: Female

DRUGS (14)
  1. ABILIFY [Suspect]
     Indication: SCHIZOAFFECTIVE DISORDER
     Dosage: 5MG UNTILL -OCT08,DOSE INCREASED TO 10MG QD.DOSE REDUCED TO 5MG ON 11JUL08
  2. DEPAKOTE ER [Suspect]
     Indication: SCHIZOAFFECTIVE DISORDER
     Dosage: DOSE DECREASED TO 500MG ON JAN08
     Dates: start: 20070801, end: 20081201
  3. ZOCOR [Suspect]
  4. DEPAKOTE [Concomitant]
     Indication: SCHIZOAFFECTIVE DISORDER
     Dosage: 2 TO 3 TABS.
     Dates: start: 20050101, end: 20080801
  5. ZOLOFT [Concomitant]
  6. FOLIC ACID [Concomitant]
  7. ASPIRIN [Concomitant]
  8. IRON [Concomitant]
  9. PREMARIN [Concomitant]
  10. DILANTIN [Concomitant]
  11. PROAMATINE [Concomitant]
  12. TOCOPHEROLS [Concomitant]
  13. TYLENOL (CAPLET) [Concomitant]
  14. MILK OF MAGNESIA TAB [Concomitant]

REACTIONS (1)
  - HEPATIC ENZYME INCREASED [None]
